FAERS Safety Report 6004316-7 (Version None)
Quarter: 2008Q4

REPORT INFORMATION
  Report Type: 
  Country: None (occurrence: None)
  Receive Date: 20081216
  Receipt Date: 20081209
  Transmission Date: 20090506
  Serious: Yes (Other)
  Sender: FDA-Public Use
  Company Number: US-BIOGENIDEC-2008BI033239

PATIENT
  Age: 59 Year
  Sex: Male

DRUGS (8)
  1. TYSABRI [Suspect]
     Indication: MULTIPLE SCLEROSIS
     Route: 042
     Dates: start: 20061016
  2. CARDURA [Concomitant]
  3. BACLOFEN [Concomitant]
     Indication: MUSCLE SPASTICITY
  4. ASPIRIN [Concomitant]
  5. MULTI-VITAMINS [Concomitant]
  6. CRESTOR [Concomitant]
  7. TRICOR [Concomitant]
  8. ATENOLOL [Concomitant]

REACTIONS (5)
  - BACK PAIN [None]
  - INSOMNIA [None]
  - MULTIPLE SCLEROSIS RELAPSE [None]
  - MUSCLE SPASTICITY [None]
  - PROSTATE CANCER [None]
